FAERS Safety Report 17560425 (Version 1)
Quarter: 2020Q1

REPORT INFORMATION
  Report Type: Spontaneous
  Country: US (occurrence: US)
  Receive Date: 20200319
  Receipt Date: 20200319
  Transmission Date: 20200409
  Serious: No
  Sender: FDA-Public Use
  Company Number: US-PFIZER INC-2020117392

PATIENT
  Age: 3 Decade
  Sex: Female
  Weight: 70.31 kg

DRUGS (1)
  1. ZOLOFT [Suspect]
     Active Substance: SERTRALINE HYDROCHLORIDE
     Dosage: UNK
     Dates: start: 1998

REACTIONS (2)
  - Intentional product misuse [Unknown]
  - Drug withdrawal syndrome [Unknown]
